FAERS Safety Report 10200377 (Version 1)
Quarter: 2014Q2

REPORT INFORMATION
  Report Type: Spontaneous
  Country: NL (occurrence: NL)
  Receive Date: 20140528
  Receipt Date: 20140528
  Transmission Date: 20141212
  Serious: Yes (Hospitalization, Other)
  Sender: FDA-Public Use
  Company Number: NL-AMGEN-NLDSP2014037733

PATIENT
  Age: 62 Year
  Sex: Male

DRUGS (1)
  1. ARANESP [Suspect]
     Indication: MYELODYSPLASTIC SYNDROME
     Dosage: 0.4 ML (200 MCG/ML), QWK
     Route: 058
     Dates: start: 20140430, end: 20140520

REACTIONS (2)
  - Hospitalisation [Unknown]
  - Transfusion [Unknown]
